FAERS Safety Report 7808823-3 (Version None)
Quarter: 2011Q4

REPORT INFORMATION
  Report Type: 
  Country: None (occurrence: None)
  Receive Date: 20111012
  Receipt Date: 20111005
  Transmission Date: 20120403
  Serious: Yes (Hospitalization, Other)
  Sender: FDA-Public Use
  Company Number: PHHY2011JP41077

PATIENT
  Age: 74 Year
  Sex: Male
  Weight: 55 kg

DRUGS (7)
  1. EPLERENONE [Suspect]
     Indication: HYPOKALAEMIA
  2. SLOW-K [Suspect]
     Indication: HYPOKALAEMIA
     Dosage: 1 DF, QD
     Route: 048
     Dates: start: 20090212, end: 20100327
  3. TENORMIN [Concomitant]
     Dosage: UNK
  4. RASILEZ [Suspect]
     Indication: HYPERTENSION
     Dosage: 1 DF, QD
     Route: 048
     Dates: start: 20101122, end: 20110509
  5. OLMESARTAN MEDOXOMIL [Suspect]
     Indication: HYPERTENSION
     Route: 048
  6. MUCOSTA [Concomitant]
     Dosage: UNK
  7. CRESTOR [Concomitant]
     Dosage: UNK

REACTIONS (5)
  - DECREASED APPETITE [None]
  - BLOOD PRESSURE DECREASED [None]
  - HYPERKALAEMIA [None]
  - RENAL FAILURE [None]
  - DIARRHOEA [None]
